FAERS Safety Report 5249141-X (Version None)
Quarter: 2007Q1

REPORT INFORMATION
  Report Type: 
  Country: None (occurrence: None)
  Receive Date: 20070228
  Receipt Date: 20070214
  Transmission Date: 20070707
  Serious: Yes (Other)
  Sender: FDA-Public Use
  Company Number: PHBS2007BR02799

PATIENT
  Age: 19 Year
  Sex: Male

DRUGS (1)
  1. ACLASTA [Suspect]
     Indication: OSTEITIS DEFORMANS
     Dosage: UNK, ONCE/SINGLE
     Dates: start: 20070212, end: 20070212

REACTIONS (6)
  - HEADACHE [None]
  - MONONUCLEOSIS SYNDROME [None]
  - MYALGIA [None]
  - PAIN IN JAW [None]
  - PYREXIA [None]
  - VIRAL INFECTION [None]
